FAERS Safety Report 4945006-9 (Version None)
Quarter: 2006Q1

REPORT INFORMATION
  Report Type: 
  Country: None (occurrence: None)
  Receive Date: 20060117
  Receipt Date: 20050617
  Transmission Date: 20060701
  Serious: Yes (Other)
  Sender: FDA-Public Use
  Company Number: A03200501866

PATIENT
  Age: 63 Year
  Sex: Male
  Weight: 92.0802 kg

DRUGS (4)
  1. PLAVIX [Suspect]
     Indication: ATRIAL SEPTAL DEFECT
     Dosage: 75 MG QD - ORAL
     Route: 048
  2. PLAVIX [Suspect]
     Indication: CEREBROVASCULAR ACCIDENT
     Dosage: 75 MG QD - ORAL
     Route: 048
  3. ROSUVASTATIN [Concomitant]
  4. FOLIC ACID [Concomitant]

REACTIONS (3)
  - CONTUSION [None]
  - EPISTAXIS [None]
  - HAEMOGLOBIN DECREASED [None]
